FAERS Safety Report 18350274 (Version 1)
Quarter: 2020Q4

REPORT INFORMATION
  Report Type: Report from Study
  Country: US (occurrence: US)
  Receive Date: 20201006
  Receipt Date: 20201006
  Transmission Date: 20210114
  Serious: Yes (Hospitalization)
  Sender: FDA-Public Use
  Company Number: US-EISAI MEDICAL RESEARCH-EC-2020-079408

PATIENT
  Age: 76 Year
  Sex: Female

DRUGS (1)
  1. LENVIMA [Suspect]
     Active Substance: LENVATINIB
     Indication: ENDOMETRIAL CANCER
     Route: 048
     Dates: start: 20200801, end: 20200901

REACTIONS (13)
  - Blood pressure increased [Unknown]
  - Fatigue [Unknown]
  - Arthralgia [Unknown]
  - Hallucination [Unknown]
  - Dysphonia [Unknown]
  - Constipation [Unknown]
  - Nail discolouration [Unknown]
  - Blood pressure diastolic increased [Unknown]
  - Nausea [Unknown]
  - Headache [Unknown]
  - Myalgia [Unknown]
  - Sensitive skin [Unknown]
  - Blood sodium decreased [Unknown]

NARRATIVE: CASE EVENT DATE: 2020
